FAERS Safety Report 4641310-2 (Version None)
Quarter: 2005Q2

REPORT INFORMATION
  Report Type: 
  Country: None (occurrence: None)
  Receive Date: 20050419
  Receipt Date: 20050409
  Transmission Date: 20051028
  Serious: Yes (Life-Threatening, Hospitalization)
  Sender: FDA-Public Use
  Company Number: 05P-056-0296247-00

PATIENT
  Age: 45 Year
  Sex: Male

DRUGS (5)
  1. NORVIR [Suspect]
     Indication: HIV INFECTION
     Dosage: 100 MG, 2 IN 1 D, PER ORAL
     Route: 048
  2. INDINAVIR [Suspect]
     Indication: HIV INFECTION
     Dosage: 400 MG, 2 IN 1 D, PER ORAL
     Route: 048
  3. LAMIVUDINE [Suspect]
     Indication: HIV INFECTION
     Dosage: 300 MG, 1 IN 1 D, PER ORAL
     Route: 048
     Dates: end: 20040706
  4. STAVUDINE [Suspect]
     Indication: HIV INFECTION
     Dosage: 400 MG, 2 IN 1 D, PER ORAL
     Route: 048
     Dates: end: 20040706
  5. ERGENYL CHRONO [Concomitant]

REACTIONS (5)
  - HYPERLACTACIDAEMIA [None]
  - INFECTION [None]
  - NEUROPATHY PERIPHERAL [None]
  - RADIUS FRACTURE [None]
  - RESPIRATORY DISTRESS [None]
